FAERS Safety Report 21261151 (Version 1)
Quarter: 2022Q3

REPORT INFORMATION
  Report Type: Spontaneous
  Country: DE (occurrence: DE)
  Receive Date: 20220826
  Receipt Date: 20220826
  Transmission Date: 20221027
  Serious: Yes (Other)
  Sender: FDA-Public Use
  Company Number: DE-BAUSCH-BL-2022-020465

PATIENT
  Age: 67 Year
  Sex: Female

DRUGS (6)
  1. TIMOLOL MALEATE [Suspect]
     Active Substance: TIMOLOL MALEATE
     Indication: Intraocular pressure test
     Route: 065
  2. TIMOLOL MALEATE [Suspect]
     Active Substance: TIMOLOL MALEATE
     Route: 065
  3. TIMOLOL MALEATE [Suspect]
     Active Substance: TIMOLOL MALEATE
     Indication: Intraocular pressure test
     Route: 065
     Dates: start: 2018
  4. TIMOLOL MALEATE [Suspect]
     Active Substance: TIMOLOL MALEATE
     Route: 065
  5. ZINC [Concomitant]
     Active Substance: ZINC
     Indication: Product used for unknown indication
  6. VITAMIN C [Concomitant]
     Active Substance: ASCORBIC ACID
     Indication: Product used for unknown indication

REACTIONS (4)
  - Intraocular pressure increased [Unknown]
  - Blood pressure decreased [Unknown]
  - Therapeutic product effect variable [Unknown]
  - Therapeutic product effect decreased [Unknown]
